FAERS Safety Report 5371236-0 (Version None)
Quarter: 2007Q2

REPORT INFORMATION
  Report Type: 
  Country: None (occurrence: None)
  Receive Date: 20070615
  Receipt Date: 20070418
  Transmission Date: 20071010
  Serious: Yes (Other)
  Sender: FDA-Public Use
  Company Number: 200712810US

PATIENT
  Age: 85 Year
  Sex: Male

DRUGS (6)
  1. LANTUS [Suspect]
     Indication: DIABETES MELLITUS NON-INSULIN-DEPENDENT
     Dosage: 8 U QPM
  2. LANTUS [Suspect]
     Indication: DIABETES MELLITUS NON-INSULIN-DEPENDENT
     Dosage: 12 U;
     Dates: start: 20060919
  3. ALCOHOL  /00002101/ [Suspect]
  4. AMLODIPINE (NORVASC 00972401/) [Concomitant]
  5. TERAZOSIN HCL [Concomitant]
  6. ASPIRIN [Concomitant]

REACTIONS (1)
  - HYPOGLYCAEMIC UNCONSCIOUSNESS [None]
